FAERS Safety Report 17659740 (Version 2)
Quarter: 2020Q2

REPORT INFORMATION
  Report Type: Spontaneous
  Country: PT (occurrence: PT)
  Receive Date: 20200413
  Receipt Date: 20200414
  Transmission Date: 20200713
  Serious: Yes (Hospitalization, Other)
  Sender: FDA-Public Use
  Company Number: PT-ELI_LILLY_AND_COMPANY-PT202003014062

PATIENT
  Sex: Female

DRUGS (3)
  1. INSULIN GLARGINE [Suspect]
     Active Substance: INSULIN GLARGINE
     Indication: TYPE 1 DIABETES MELLITUS
     Dosage: 34 INTERNATIONAL UNIT, DAILY
     Route: 065
  2. INSULIN LISPRO [Suspect]
     Active Substance: INSULIN LISPRO
     Indication: TYPE 1 DIABETES MELLITUS
     Dosage: BASED ON HER MEALS, UNKNOWN
     Route: 065
  3. INSULIN GLARGINE [Suspect]
     Active Substance: INSULIN GLARGINE
     Dosage: 30 INTERNATIONAL UNIT, DAILY

REACTIONS (11)
  - Blood glucose abnormal [Unknown]
  - Pyrexia [Unknown]
  - Nausea [Unknown]
  - Treatment noncompliance [Unknown]
  - Acute kidney injury [Unknown]
  - Cough [Unknown]
  - Vomiting [Unknown]
  - Abdominal pain [Unknown]
  - Rhinorrhoea [Unknown]
  - Myalgia [Unknown]
  - Diabetic ketoacidosis [Recovered/Resolved]
